FAERS Safety Report 16608099 (Version 1)
Quarter: 2019Q3

REPORT INFORMATION
  Report Type: Spontaneous
  Country: FR (occurrence: FR)
  Receive Date: 20190722
  Receipt Date: 20190722
  Transmission Date: 20191004
  Serious: Yes (Death)
  Sender: FDA-Public Use
  Company Number: FR-PFIZER INC-2019304323

PATIENT
  Age: 78 Year
  Sex: Male
  Weight: 51 kg

DRUGS (6)
  1. METHYLPREDNISOLONE. [Concomitant]
     Active Substance: METHYLPREDNISOLONE
     Dosage: UNK
  2. APREPITANT. [Concomitant]
     Active Substance: APREPITANT
     Dosage: UNK
  3. ONDANSETRON [Concomitant]
     Active Substance: ONDANSETRON
     Dosage: UNK
  4. TECENTRIQ [Suspect]
     Active Substance: ATEZOLIZUMAB
     Indication: SMALL CELL LUNG CANCER
     Dosage: 1200 MG, SINGLE
     Route: 042
     Dates: start: 20190516, end: 20190516
  5. ETOPOSIDE. [Suspect]
     Active Substance: ETOPOSIDE
     Indication: SMALL CELL LUNG CANCER
     Dosage: 160 MG, 1X/DAY
     Route: 042
     Dates: start: 20190516, end: 20190518
  6. CARBOPLATIN. [Suspect]
     Active Substance: CARBOPLATIN
     Indication: SMALL CELL LUNG CANCER
     Dosage: 460 KIU, SINGLE
     Route: 042
     Dates: start: 20190516, end: 20190516

REACTIONS (2)
  - General physical health deterioration [Fatal]
  - Neutropenia [Fatal]

NARRATIVE: CASE EVENT DATE: 2019
